FAERS Safety Report 8834082 (Version 1)
Quarter: 2012Q4

REPORT INFORMATION
  Report Type: Spontaneous
  Country: US (occurrence: None)
  Receive Date: 20121011
  Receipt Date: 20121011
  Transmission Date: 20130627
  Serious: Yes (Life-Threatening)
  Sender: FDA-Public Use
  Company Number: None

PATIENT
  Age: 60 Year
  Sex: Male
  Weight: 119.3 kg

DRUGS (1)
  1. METHYLPREDNISOLONE ACETATE [Suspect]
     Indication: KNEE SURGERY NOS
     Dosage: 40 mg 1 once intrameningeal
     Route: 029
     Dates: start: 20120621, end: 20120621

REACTIONS (1)
  - Meningitis viral [None]
